FAERS Safety Report 25800020 (Version 1)
Quarter: 2025Q3

REPORT INFORMATION
  Report Type: Spontaneous
  Country: GB (occurrence: GB)
  Receive Date: 20250914
  Receipt Date: 20250914
  Transmission Date: 20251021
  Serious: Yes (Disabling, Other)
  Sender: BIOGEN
  Company Number: None

PATIENT
  Age: 51 Year
  Sex: Female
  Weight: 60 kg

DRUGS (8)
  1. TECFIDERA [Suspect]
     Active Substance: DIMETHYL FUMARATE
     Indication: Multiple sclerosis
     Dosage: 240MG TWICE A DAY
     Route: 050
     Dates: start: 20250401
  2. TECFIDERA [Suspect]
     Active Substance: DIMETHYL FUMARATE
     Indication: Multiple sclerosis
     Route: 050
  3. GABAPENTIN [Concomitant]
     Active Substance: GABAPENTIN
     Indication: Product used for unknown indication
     Route: 050
     Dates: start: 20250729
  4. BACLOFEN [Concomitant]
     Active Substance: BACLOFEN
     Indication: Product used for unknown indication
     Route: 050
     Dates: start: 20250501
  5. CODEINE [Concomitant]
     Active Substance: CODEINE
     Indication: Pain
     Route: 050
     Dates: start: 20250501
  6. ESTRADIOL [Concomitant]
     Active Substance: ESTRADIOL
     Indication: Pain
     Route: 050
     Dates: start: 20250501
  7. PROGESTERONE [Concomitant]
     Active Substance: PROGESTERONE
     Indication: Pain
     Route: 050
     Dates: start: 20250501
  8. IBUPROFEN 10% w/w GEL [Concomitant]
     Indication: Pain
     Route: 050
     Dates: start: 20250601

REACTIONS (3)
  - Multiple sclerosis relapse [Not Recovered/Not Resolved]
  - Medication error [Unknown]
  - Product substitution issue [Unknown]

NARRATIVE: CASE EVENT DATE: 20250401
